FAERS Safety Report 20778736 (Version 2)
Quarter: 2022Q3

REPORT INFORMATION
  Report Type: Spontaneous
  Country: GB (occurrence: GB)
  Receive Date: 20220503
  Receipt Date: 20220711
  Transmission Date: 20221027
  Serious: Yes (Hospitalization)
  Sender: FDA-Public Use
  Company Number: None

PATIENT
  Age: 72 Year
  Sex: Male

DRUGS (15)
  1. CLOPIDOGREL [Suspect]
     Active Substance: CLOPIDOGREL BISULFATE
     Indication: Product used for unknown indication
     Dosage: LAST ISSUED ON 16-MAR-2022, UNCOATED
     Route: 048
     Dates: end: 20220316
  2. SIMPONI [Suspect]
     Active Substance: GOLIMUMAB
     Indication: Ankylosing spondylitis
     Route: 058
  3. UMECLIDINIUM BROMIDE\VILANTEROL TRIFENATATE [Concomitant]
     Active Substance: UMECLIDINIUM BROMIDE\VILANTEROL TRIFENATATE
     Indication: Product used for unknown indication
     Dosage: UNKNOWN
     Route: 065
  4. ATORVASTATIN [Concomitant]
     Active Substance: ATORVASTATIN
     Indication: Product used for unknown indication
     Dosage: LAST ADMINISTERED ON 16-MAR-2022, UNCOATED
     Route: 048
     Dates: end: 20220316
  5. CARVEDILOL [Concomitant]
     Active Substance: CARVEDILOL
     Indication: Product used for unknown indication
     Dosage: LAST ADMINISTERED ON 16-MAR-2022, UNCOATED
     Route: 048
     Dates: end: 20220316
  6. DICLOFENAC DIETHYLAMINE [Concomitant]
     Active Substance: DICLOFENAC DIETHYLAMINE
     Indication: Arthralgia
     Dosage: LAST ADMINISTERED ON 16-MAR-2022
     Route: 065
     Dates: end: 20220316
  7. EXOREX [Concomitant]
     Active Substance: COAL TAR
     Indication: Product used for unknown indication
     Dosage: UNKNOWN
     Route: 065
  8. CHOLECALCIFEROL [Concomitant]
     Active Substance: CHOLECALCIFEROL
     Indication: Product used for unknown indication
     Dosage: LAST ADMINISTERED ON 16-MAR-2022
     Route: 065
     Dates: end: 20220316
  9. GLICLAZIDE [Concomitant]
     Active Substance: GLICLAZIDE
     Indication: Product used for unknown indication
     Dosage: LAST ADMINISTERED ON 16-MAR-2022, TWO TABLET WITH BREAKFAST AND TWO WITH EVENING MEAL
     Route: 048
     Dates: end: 20220316
  10. LINAGLIPTIN [Concomitant]
     Active Substance: LINAGLIPTIN
     Indication: Product used for unknown indication
     Dosage: LAST ADMINISTERED ON 16-MAR-2022, UNCOATED
     Route: 048
     Dates: end: 20220316
  11. LOPERAMIDE [Concomitant]
     Active Substance: LOPERAMIDE
     Indication: Product used for unknown indication
     Dosage: LAST ADMINISTERED ON 20-JAN-2022
     Route: 065
     Dates: end: 20220120
  12. METFORMIN [Concomitant]
     Active Substance: METFORMIN HYDROCHLORIDE
     Indication: Product used for unknown indication
     Dosage: LAST ADMINISTERED ON 16-MAR-2022, UNCOATED
     Route: 048
     Dates: end: 20220316
  13. ALBUTEROL [Concomitant]
     Active Substance: ALBUTEROL
     Indication: Product used for unknown indication
     Dosage: 1X 200 DOSE LAST ADMINISTERED ON 16-MAR-2022
     Route: 065
     Dates: end: 20220316
  14. SALICYLIC ACID [Concomitant]
     Active Substance: SALICYLIC ACID
     Indication: Product used for unknown indication
     Dosage: UNKNOWN
     Route: 065
  15. SILDENAFIL [Concomitant]
     Active Substance: SILDENAFIL
     Indication: Product used for unknown indication
     Dosage: LAST ADMINISTERED ON 16-MAR-2022, UNCOATED
     Route: 048
     Dates: end: 20220316

REACTIONS (3)
  - Oesophageal varices haemorrhage [Recovered/Resolved]
  - Off label use [Unknown]
  - Product use issue [Unknown]

NARRATIVE: CASE EVENT DATE: 20211213
